FAERS Safety Report 12117747 (Version 2)
Quarter: 2016Q2

REPORT INFORMATION
  Report Type: Spontaneous
  Country: FR (occurrence: FR)
  Receive Date: 20160226
  Receipt Date: 20160613
  Transmission Date: 20160815
  Serious: Yes (Other)
  Sender: FDA-Public Use
  Company Number: FR-PFIZER INC-2016099726

PATIENT
  Age: 44 Year
  Sex: Male

DRUGS (4)
  1. LYRICA [Suspect]
     Active Substance: PREGABALIN
     Dosage: 600 MG, DAILY
     Dates: end: 201602
  2. LYRICA [Suspect]
     Active Substance: PREGABALIN
     Indication: NEURALGIA
     Dosage: 500 MG, DAILY
  3. LYRICA [Suspect]
     Active Substance: PREGABALIN
     Dosage: 200 MG, 2X/DAY
  4. LAROXYL [Concomitant]
     Active Substance: AMITRIPTYLINE
     Dosage: 25 MG, 1X/DAY
     Dates: start: 2013, end: 201602

REACTIONS (7)
  - Antinuclear antibody positive [Unknown]
  - Weight increased [Unknown]
  - Gamma-glutamyltransferase increased [Unknown]
  - Electrophoresis protein abnormal [Unknown]
  - Somnolence [Unknown]
  - Pain in extremity [Unknown]
  - Gait disturbance [Unknown]
